FAERS Safety Report 6881400-7 (Version None)
Quarter: 2010Q3

REPORT INFORMATION
  Report Type: 
  Country: None (occurrence: None)
  Receive Date: 20100728
  Receipt Date: 20090720
  Transmission Date: 20110219
  Serious: No
  Sender: FDA-Public Use
  Company Number: US-MYLANLABS-2009S1012845

PATIENT
  Age: 53 Year
  Sex: Female

DRUGS (2)
  1. TRAMADOL HYDROCHLORIDE [Suspect]
     Indication: BACK PAIN
     Route: 048
     Dates: start: 20090719
  2. ASPIRIN [Concomitant]
     Route: 048

REACTIONS (2)
  - BACK PAIN [None]
  - DRUG INEFFECTIVE [None]
